FAERS Safety Report 4794981-4 (Version None)
Quarter: 2005Q4

REPORT INFORMATION
  Report Type: 
  Country: None (occurrence: None)
  Receive Date: 20051006
  Receipt Date: 20050923
  Transmission Date: 20060501
  Serious: Yes (Hospitalization)
  Sender: FDA-Public Use
  Company Number: 2005135731

PATIENT
  Age: 22 Year
  Sex: Male

DRUGS (1)
  1. ZYRTEC [Suspect]
     Indication: DERMATITIS ATOPIC
     Dosage: 10 MG, ORAL
     Route: 048
     Dates: end: 20050804

REACTIONS (1)
  - HEPATITIS CHOLESTATIC [None]
